FAERS Safety Report 6403610-5 (Version None)
Quarter: 2009Q4

REPORT INFORMATION
  Report Type: 
  Country: None (occurrence: None)
  Receive Date: 20091013
  Receipt Date: 20090929
  Transmission Date: 20100525
  Serious: No
  Sender: FDA-Public Use
  Company Number: 007428

PATIENT
  Age: 59 Year
  Sex: Female

DRUGS (1)
  1. PLETAL [Suspect]
     Indication: LACUNAR INFARCTION
     Dosage: 100 MG, BID ORAL
     Route: 048
     Dates: start: 20090817, end: 20090826

REACTIONS (2)
  - ERYTHEMA MULTIFORME [None]
  - RASH [None]
